FAERS Safety Report 16717140 (Version 1)
Quarter: 2019Q3

REPORT INFORMATION
  Report Type: Spontaneous
  Country: US (occurrence: US)
  Receive Date: 20190819
  Receipt Date: 20190819
  Transmission Date: 20191005
  Serious: No
  Sender: FDA-Public Use
  Company Number: US-BRISTOL-MYERS SQUIBB COMPANY-BMS-2019-080742

PATIENT
  Sex: Male
  Weight: 100 kg

DRUGS (1)
  1. ELIQUIS [Suspect]
     Active Substance: APIXABAN
     Indication: EMBOLISM
     Dosage: 5 MILLIGRAM, BID
     Route: 065
     Dates: start: 20190313, end: 20190812

REACTIONS (1)
  - Adverse event [Unknown]
